FAERS Safety Report 5929547-3 (Version None)
Quarter: 2008Q4

REPORT INFORMATION
  Report Type: 
  Country: None (occurrence: None)
  Receive Date: 20081024
  Receipt Date: 20081015
  Transmission Date: 20090506
  Serious: Yes (Other)
  Sender: FDA-Public Use
  Company Number: B0542440A

PATIENT
  Age: 13 Year
  Sex: Male
  Weight: 34 kg

DRUGS (2)
  1. SERETIDE [Suspect]
     Indication: EMPHYSEMA
     Route: 055
     Dates: start: 20040101, end: 20081014
  2. TRILEPTAL [Concomitant]
     Indication: EPILEPSY
     Dosage: 10ML TWICE PER DAY
     Route: 048
     Dates: start: 20030101

REACTIONS (2)
  - DISTURBANCE IN ATTENTION [None]
  - EPILEPSY [None]
